FAERS Safety Report 14301301 (Version 1)
Quarter: 2017Q4

REPORT INFORMATION
  Report Type: Spontaneous
  Country: US (occurrence: US)
  Receive Date: 20171218
  Receipt Date: 20171218
  Transmission Date: 20180321
  Serious: Yes (Disabling, Other)
  Sender: FDA-Public Use
  Company Number: None

PATIENT
  Sex: Male
  Weight: 98.1 kg

DRUGS (1)
  1. FINASTERIDE. [Suspect]
     Active Substance: FINASTERIDE

REACTIONS (4)
  - Blood testosterone decreased [None]
  - Penile size reduced [None]
  - Libido decreased [None]
  - Penile contusion [None]

NARRATIVE: CASE EVENT DATE: 20121001
